FAERS Safety Report 8373485-6 (Version None)
Quarter: 2012Q2

REPORT INFORMATION
  Report Type: 
  Country: None (occurrence: None)
  Receive Date: 20120521
  Receipt Date: 20110912
  Transmission Date: 20120825
  Serious: No
  Sender: FDA-Public Use
  Company Number: US-TEVA-2011003303

PATIENT
  Sex: Female
  Weight: 99.426 kg

DRUGS (3)
  1. MIRALAX [Concomitant]
     Dates: start: 20110524, end: 20110526
  2. CARVEDILOL [Concomitant]
     Dates: start: 20110519
  3. TREANDA [Suspect]
     Indication: CHRONIC LYMPHOCYTIC LEUKAEMIA
     Route: 042
     Dates: start: 20110503

REACTIONS (1)
  - RASH MACULAR [None]
